FAERS Safety Report 14973382 (Version 4)
Quarter: 2018Q4

REPORT INFORMATION
  Report Type: Report from Study
  Country: None (occurrence: DE)
  Receive Date: 20180605
  Receipt Date: 20181130
  Transmission Date: 20190204
  Serious: Yes (Hospitalization)
  Sender: FDA-Public Use
  Company Number: DE-ABBVIE-18K-062-2377428-00

PATIENT
  Age: 48 Year
  Sex: Male
  Weight: 103 kg

DRUGS (3)
  1. HUMIRA [Suspect]
     Active Substance: ADALIMUMAB
     Indication: PSORIASIS
     Route: 058
     Dates: start: 20171115, end: 20180406
  2. TALTZ [Suspect]
     Active Substance: IXEKIZUMAB
     Route: 058
     Dates: start: 2018
  3. TALTZ [Suspect]
     Active Substance: IXEKIZUMAB
     Indication: PSORIASIS
     Route: 058
     Dates: start: 20180419, end: 2018

REACTIONS (12)
  - Dermatitis exfoliative generalised [Recovered/Resolved]
  - Psoriasis [Recovered/Resolved]
  - Dandruff [Unknown]
  - Blood urea increased [Unknown]
  - Blood fibrinogen increased [Unknown]
  - Rash pustular [Recovered/Resolved]
  - Blood potassium increased [Unknown]
  - Tachycardia [Unknown]
  - Chills [Recovered/Resolved]
  - Chills [Recovered/Resolved]
  - Dermatitis exfoliative generalised [Recovered/Resolved]
  - Blood glucose increased [Unknown]

NARRATIVE: CASE EVENT DATE: 20180406
